FAERS Safety Report 17316478 (Version 1)
Quarter: 2020Q1

REPORT INFORMATION
  Report Type: Spontaneous
  Country: FR (occurrence: FR)
  Receive Date: 20200124
  Receipt Date: 20200124
  Transmission Date: 20200409
  Serious: Yes (Death, Hospitalization, Other)
  Sender: FDA-Public Use
  Company Number: FR-MYLANLABS-2020M1007110

PATIENT
  Age: 78 Year
  Sex: Female

DRUGS (2)
  1. PRISTINAMYCIN [Concomitant]
     Active Substance: PRISTINAMYCIN
     Indication: PRODUCT USED FOR UNKNOWN INDICATION
     Dosage: UNK
  2. VALACICLOVIR [Suspect]
     Active Substance: VALACYCLOVIR HYDROCHLORIDE
     Indication: HERPES ZOSTER
     Dosage: UNK
     Route: 065

REACTIONS (5)
  - Dermo-hypodermitis [Fatal]
  - Mycetoma mycotic [Fatal]
  - Herpes zoster [Fatal]
  - Inflammation [Fatal]
  - Condition aggravated [Fatal]
